FAERS Safety Report 22948741 (Version 4)
Quarter: 2025Q4

REPORT INFORMATION
  Report Type: Spontaneous
  Country: US (occurrence: US)
  Receive Date: 20230915
  Receipt Date: 20251123
  Transmission Date: 20260118
  Serious: No
  Sender: SANOFI AVENTIS
  Company Number: US-SA-SAC20230913001588

PATIENT
  Age: 38 Year
  Sex: Male

DRUGS (1)
  1. DUPIXENT [Suspect]
     Active Substance: DUPILUMAB
     Indication: Eosinophilic oesophagitis
     Dosage: 300 MG, QW
     Route: 058
     Dates: start: 20230709

REACTIONS (4)
  - Eyelid abrasion [Recovered/Resolved]
  - Erythema of eyelid [Recovered/Resolved]
  - Oral herpes [Unknown]
  - Hip surgery [Unknown]

NARRATIVE: CASE EVENT DATE: 20230101
